FAERS Safety Report 17931122 (Version 1)
Quarter: 2020Q2

REPORT INFORMATION
  Report Type: Report from Study
  Country: CO (occurrence: CO)
  Receive Date: 20200623
  Receipt Date: 20200623
  Transmission Date: 20200714
  Serious: Yes (Hospitalization)
  Sender: FDA-Public Use
  Company Number: PHHY2019CO194200

PATIENT
  Sex: Male
  Weight: 76 kg

DRUGS (3)
  1. REVOLADE [Suspect]
     Active Substance: ELTROMBOPAG
     Dosage: 50 MG, QD
     Route: 048
  2. REVOLADE [Suspect]
     Active Substance: ELTROMBOPAG
     Indication: APLASTIC ANAEMIA
     Dosage: 50 MG, QD
     Route: 048
     Dates: start: 201701, end: 201701
  3. ERYTHROPOIETIN [Concomitant]
     Active Substance: ERYTHROPOIETIN
     Indication: APLASTIC ANAEMIA
     Dosage: UNK (EVERY 15 DAYS)
     Route: 065
     Dates: start: 201906

REACTIONS (5)
  - Epistaxis [Unknown]
  - Drug ineffective [Unknown]
  - Chills [Unknown]
  - Platelet count decreased [Unknown]
  - Haemoglobin decreased [Unknown]
